FAERS Safety Report 13310876 (Version 3)
Quarter: 2019Q4

REPORT INFORMATION
  Report Type: Spontaneous
  Country: US (occurrence: US)
  Receive Date: 20170309
  Receipt Date: 20191206
  Transmission Date: 20200122
  Serious: No
  Sender: FDA-Public Use
  Company Number: US-JNJFOC-20170206090

PATIENT
  Age: 15 Year
  Sex: Male

DRUGS (17)
  1. INVEGA [Suspect]
     Active Substance: PALIPERIDONE
     Indication: ANXIETY
  2. RISPERIDONE. [Suspect]
     Active Substance: RISPERIDONE
     Indication: ATTENTION DEFICIT/HYPERACTIVITY DISORDER
     Route: 065
     Dates: start: 20110309
  3. RISPERDAL [Suspect]
     Active Substance: RISPERIDONE
     Indication: DISTURBANCE IN SOCIAL BEHAVIOUR
     Route: 048
     Dates: start: 20110309
  4. RISPERDAL [Suspect]
     Active Substance: RISPERIDONE
     Indication: ATTENTION DEFICIT/HYPERACTIVITY DISORDER
  5. RISPERDAL [Suspect]
     Active Substance: RISPERIDONE
     Indication: AFFECTIVE DISORDER
  6. INVEGA [Suspect]
     Active Substance: PALIPERIDONE
     Indication: CYCLOTHYMIC DISORDER
     Route: 048
     Dates: start: 20130207
  7. INVEGA [Suspect]
     Active Substance: PALIPERIDONE
     Indication: ATTENTION DEFICIT/HYPERACTIVITY DISORDER
     Route: 048
     Dates: start: 2011, end: 2012
  8. RISPERDAL [Suspect]
     Active Substance: RISPERIDONE
     Indication: CYCLOTHYMIC DISORDER
  9. SEROQUEL [Suspect]
     Active Substance: QUETIAPINE FUMARATE
     Indication: INSOMNIA
     Route: 065
     Dates: start: 2011, end: 2012
  10. RISPERIDONE. [Suspect]
     Active Substance: RISPERIDONE
     Indication: BEHAVIOUR DISORDER
  11. INVEGA [Suspect]
     Active Substance: PALIPERIDONE
     Indication: DISTURBANCE IN SOCIAL BEHAVIOUR
     Route: 048
     Dates: start: 20121012, end: 20130116
  12. INVEGA [Suspect]
     Active Substance: PALIPERIDONE
     Indication: AFFECTIVE DISORDER
  13. RISPERIDONE. [Suspect]
     Active Substance: RISPERIDONE
     Indication: CYCLOTHYMIC DISORDER
  14. RISPERDAL [Suspect]
     Active Substance: RISPERIDONE
     Indication: BEHAVIOUR DISORDER
     Route: 048
     Dates: start: 20110221
  15. INVEGA [Suspect]
     Active Substance: PALIPERIDONE
     Indication: BEHAVIOUR DISORDER
     Route: 048
     Dates: start: 20120524, end: 20120925
  16. RISPERIDONE. [Suspect]
     Active Substance: RISPERIDONE
     Indication: AFFECTIVE DISORDER
  17. RISPERIDONE. [Suspect]
     Active Substance: RISPERIDONE
     Indication: DISTURBANCE IN SOCIAL BEHAVIOUR

REACTIONS (5)
  - Glycosylated haemoglobin increased [Unknown]
  - Emotional distress [Unknown]
  - Blood prolactin increased [Unknown]
  - Therapy cessation [Unknown]
  - Gynaecomastia [Unknown]

NARRATIVE: CASE EVENT DATE: 2011
